FAERS Safety Report 17015056 (Version 2)
Quarter: 2019Q4

REPORT INFORMATION
  Report Type: Report from Study
  Country: MX (occurrence: MX)
  Receive Date: 20191111
  Receipt Date: 20191119
  Transmission Date: 20200122
  Serious: Yes (Other)
  Sender: FDA-Public Use
  Company Number: NVSC2019MX025874

PATIENT
  Age: 65 Year
  Sex: Male
  Weight: 70 kg

DRUGS (1)
  1. GALVUS MET [Suspect]
     Active Substance: METFORMIN HYDROCHLORIDE\VILDAGLIPTIN
     Indication: DIABETES MELLITUS
     Dosage: 1 DF, QD (500 MG METFORMIN, 50 MG VILDAGLIPTIN) STARTED 4 YEARS AGO
     Route: 048

REACTIONS (2)
  - Blood triglycerides abnormal [Unknown]
  - Glaucoma [Unknown]

NARRATIVE: CASE EVENT DATE: 201807
